FAERS Safety Report 8096708-X (Version None)
Quarter: 2012Q1

REPORT INFORMATION
  Report Type: 
  Country: None (occurrence: None)
  Receive Date: 20120129
  Receipt Date: 20111109
  Transmission Date: 20120608
  Serious: No
  Sender: FDA-Public Use
  Company Number: US-ABBOTT-11P-163-0872520-00

PATIENT
  Sex: Female

DRUGS (1)
  1. HUMIRA [Suspect]
     Indication: CROHN'S DISEASE
     Route: 058
     Dates: start: 20090101, end: 20110501

REACTIONS (9)
  - GASTRIC DISORDER [None]
  - PYREXIA [None]
  - HEADACHE [None]
  - FATIGUE [None]
  - INFLUENZA [None]
  - CROHN'S DISEASE [None]
  - CHILLS [None]
  - PAIN IN EXTREMITY [None]
  - ABDOMINAL DISCOMFORT [None]
